FAERS Safety Report 14348266 (Version 4)
Quarter: 2018Q2

REPORT INFORMATION
  Report Type: Spontaneous
  Country: US (occurrence: US)
  Receive Date: 20180103
  Receipt Date: 20180627
  Transmission Date: 20180711
  Serious: No
  Sender: FDA-Public Use
  Company Number: US-PFIZER INC-2017553924

PATIENT
  Age: 71 Year
  Sex: Female

DRUGS (5)
  1. IBRANCE [Suspect]
     Active Substance: PALBOCICLIB
     Dosage: 100 MG, CYCLIC (1 CAPSULE BY MOUTH ONCE DAILY WITH FOOD FOR 21 DAYS, THEN 7 DAYS OFF)
     Route: 048
  2. IBRANCE [Suspect]
     Active Substance: PALBOCICLIB
     Indication: BREAST CANCER FEMALE
     Dosage: 125 MG, CYCLIC (1 CAPSULE BY MOUTH DAILY WITH FOOD FOR 21 DAYS ON, THEN 7 DAYS OFF EVERY 28 DAY)
     Route: 048
     Dates: start: 201712
  3. IBRANCE [Suspect]
     Active Substance: PALBOCICLIB
     Dosage: 100 MG, CYCLIC (1 CAPSULE BY MOUTH ONCE DAILY FOR 21 DAYS, REPEAT EVERY 28 DAYS)
     Route: 048
     Dates: start: 201712
  4. IBRANCE [Suspect]
     Active Substance: PALBOCICLIB
     Dosage: 125 MG, CYCLIC (1 CAPSULE BY MOUTH DAILY WITH FOOD FOR 21 DAYS ON, THEN 7 DAYS OFF EVERY 28 DAYS)
     Route: 048
     Dates: start: 201712
  5. OMEPRAZOLE CPD [Concomitant]
     Dosage: 20 MG, UNK

REACTIONS (7)
  - Memory impairment [Not Recovered/Not Resolved]
  - Musculoskeletal pain [Not Recovered/Not Resolved]
  - Feeling abnormal [Unknown]
  - Fatigue [Not Recovered/Not Resolved]
  - White blood cell count decreased [Not Recovered/Not Resolved]
  - Constipation [Not Recovered/Not Resolved]
  - Red blood cell count decreased [Not Recovered/Not Resolved]

NARRATIVE: CASE EVENT DATE: 201712
